FAERS Safety Report 6378000-4 (Version None)
Quarter: 2009Q3

REPORT INFORMATION
  Report Type: 
  Country: None (occurrence: None)
  Receive Date: 20090925
  Receipt Date: 20090923
  Transmission Date: 20100115
  Serious: Yes (Death)
  Sender: FDA-Public Use
  Company Number: PHEH2009US11644

PATIENT
  Sex: Male

DRUGS (7)
  1. EXJADE [Suspect]
     Indication: HAEMOCHROMATOSIS
     Dosage: 1250 MG DAILY
     Route: 048
     Dates: start: 20090701
  2. PLAVIX [Concomitant]
  3. PREDNISONE TAB [Concomitant]
  4. LOPRESSOR [Concomitant]
  5. FOLIC ACID [Concomitant]
  6. ACIPHEX [Concomitant]
  7. STOOL SOFTENER [Concomitant]

REACTIONS (1)
  - DEATH [None]
